FAERS Safety Report 15395931 (Version 1)
Quarter: 2018Q3

REPORT INFORMATION
  Report Type: Report from Study
  Country: TR (occurrence: TR)
  Receive Date: 20180918
  Receipt Date: 20180918
  Transmission Date: 20181010
  Serious: Yes (Other)
  Sender: FDA-Public Use
  Company Number: TR-BAYER-2018-172649

PATIENT
  Age: 64 Year
  Sex: Male

DRUGS (5)
  1. METHOTREXATE [METHOTREXATE] [Interacting]
     Active Substance: METHOTREXATE
     Indication: RHEUMATOID ARTHRITIS
     Dosage: 15 MG, OW
  2. METFORMIN [Concomitant]
     Active Substance: METFORMIN HYDROCHLORIDE
     Dosage: 15 MG, OW
  3. PREDNISONE. [Concomitant]
     Active Substance: PREDNISONE
  4. ASPIRIN. [Suspect]
     Active Substance: ASPIRIN
  5. RAMIPRIL [RAMIPRIL] [Concomitant]
     Active Substance: RAMIPRIL

REACTIONS (5)
  - Pancytopenia [None]
  - Mucosal inflammation [None]
  - Toxicity to various agents [None]
  - Contraindicated product administered [None]
  - Drug-induced liver injury [None]
